FAERS Safety Report 5273409-4 (Version None)
Quarter: 2007Q1

REPORT INFORMATION
  Report Type: 
  Country: None (occurrence: None)
  Receive Date: 20070320
  Receipt Date: 20070309
  Transmission Date: 20070707
  Serious: Yes (Death, Life-Threatening, Hospitalization)
  Sender: FDA-Public Use
  Company Number: 2007VX000815

PATIENT
  Age: 83 Year
  Sex: Male

DRUGS (8)
  1. CELANCE (PERGOLIDE MESILATE) [Suspect]
     Indication: PARKINSON'S DISEASE
     Dosage: 2 MG; QD; PO
     Route: 048
     Dates: start: 20030101
  2. CARBIDOPA [Concomitant]
  3. ENTACAPONE [Concomitant]
  4. LEVODOPA [Concomitant]
  5. HEMI-DAONIL [Concomitant]
  6. PLAVIX [Concomitant]
  7. IKOREL [Concomitant]
  8. SERC [Concomitant]

REACTIONS (7)
  - BLOOD LACTATE DEHYDROGENASE INCREASED [None]
  - HYPONATRAEMIA [None]
  - INTERSTITIAL LUNG DISEASE [None]
  - PULMONARY FIBROSIS [None]
  - PULMONARY HYPERTENSION [None]
  - RIGHT VENTRICULAR FAILURE [None]
  - SUBILEUS [None]
